FAERS Safety Report 4600781-8 (Version None)
Quarter: 2005Q1

REPORT INFORMATION
  Report Type: 
  Country: None (occurrence: None)
  Receive Date: 20050307
  Receipt Date: 20050128
  Transmission Date: 20050727
  Serious: Yes (Death, Other)
  Sender: FDA-Public Use
  Company Number: ES-MERCK-0501ESP00054

PATIENT
  Age: 60 Year
  Sex: Male

DRUGS (7)
  1. CANCIDAS [Suspect]
     Indication: PROPHYLAXIS
     Route: 042
     Dates: start: 20050112, end: 20050113
  2. CANCIDAS [Suspect]
     Route: 042
     Dates: start: 20050113, end: 20050124
  3. CANCIDAS [Suspect]
     Route: 042
     Dates: start: 20050210, end: 20050201
  4. TEICOPLANIN [Concomitant]
     Route: 042
     Dates: start: 20050110
  5. ANTIMICROBIAL (UNSPECIFIED) [Concomitant]
     Route: 042
     Dates: start: 20050111
  6. SULFAMETHOXAZOLE AND TRIMETHOPRIM [Concomitant]
     Route: 042
     Dates: start: 20050110
  7. GANCICLOVIR [Concomitant]
     Route: 042
     Dates: start: 20050108

REACTIONS (2)
  - HEPATIC ENZYME INCREASED [None]
  - MESENTERIC OCCLUSION [None]
